FAERS Safety Report 12093663 (Version 1)
Quarter: 2016Q1

REPORT INFORMATION
  Report Type: Spontaneous
  Country: US (occurrence: None)
  Receive Date: 20160218
  Receipt Date: 20160218
  Transmission Date: 20160526
  Serious: Yes (Life-Threatening)
  Sender: FDA-Public Use
  Company Number: None

PATIENT
  Age: 46 Year
  Sex: Male
  Weight: 78 kg

DRUGS (1)
  1. BUPROPION. [Suspect]
     Active Substance: BUPROPION
     Indication: TOBACCO ABUSE
     Route: 048
     Dates: start: 20150603, end: 20150701

REACTIONS (4)
  - Emotional disorder [None]
  - Suicidal ideation [None]
  - Depression [None]
  - Unevaluable event [None]

NARRATIVE: CASE EVENT DATE: 20150701
